FAERS Safety Report 8392099-5 (Version None)
Quarter: 2012Q2

REPORT INFORMATION
  Report Type: 
  Country: None (occurrence: None)
  Receive Date: 20120529
  Receipt Date: 20120523
  Transmission Date: 20120825
  Serious: Yes (Hospitalization)
  Sender: FDA-Public Use
  Company Number: AU-ROCHE-1072128

PATIENT
  Sex: Female

DRUGS (7)
  1. OXYCONTIN [Concomitant]
  2. MAGNESIUM [Concomitant]
  3. DIGESTIN [Concomitant]
  4. LANSOPRAZOLE [Concomitant]
  5. ACTEMRA [Suspect]
     Indication: RHEUMATOID ARTHRITIS
     Dates: start: 20101001
  6. VALIUM [Concomitant]
  7. ANTIDEPRESSANT [Concomitant]

REACTIONS (1)
  - ANGINA PECTORIS [None]
